FAERS Safety Report 10446675 (Version 1)
Quarter: 2014Q3

REPORT INFORMATION
  Report Type: Not Available
  Country: US (occurrence: US)
  Receive Date: 20140911
  Receipt Date: 20140911
  Transmission Date: 20150326
  Serious: Yes (Other)
  Sender: FDA-Public Use
  Company Number: US-LUPIN PHARMACEUTICALS INC.-E2B_00002361

PATIENT
  Age: 72 Year
  Sex: Female
  Weight: 66.28 kg

DRUGS (2)
  1. CIPROFLOXACIN ORAL SUSPENSION 250MG/5ML [Suspect]
     Active Substance: CIPROFLOXACIN
     Indication: LUNG INFECTION
     Dates: start: 201407, end: 20140728
  2. CIPROFLOXACIN ORAL SUSPENSION 250MG/5ML [Suspect]
     Active Substance: CIPROFLOXACIN
     Indication: PROPHYLAXIS

REACTIONS (4)
  - Drug ineffective [Unknown]
  - Product taste abnormal [Unknown]
  - Product solubility abnormal [Unknown]
  - Haemoptysis [Recovered/Resolved]

NARRATIVE: CASE EVENT DATE: 201407
